FAERS Safety Report 9420963 (Version 1)
Quarter: 2013Q3

REPORT INFORMATION
  Report Type: Spontaneous
  Country: US (occurrence: US)
  Receive Date: 20130725
  Receipt Date: 20130725
  Transmission Date: 20140515
  Serious: No
  Sender: FDA-Public Use
  Company Number: US-ABBOTT-13P-163-1117064-00

PATIENT
  Age: 85 Year
  Sex: Female
  Weight: 59.02 kg

DRUGS (5)
  1. SYNTHROID [Suspect]
     Indication: HYPOTHYROIDISM
     Route: 048
     Dates: start: 20130625, end: 20130626
  2. SYNTHROID [Suspect]
     Indication: THYROID DISORDER
  3. XANAX [Concomitant]
     Indication: CHEST DISCOMFORT
  4. COREG [Concomitant]
     Indication: ARRHYTHMIA
  5. CARVEDILOL [Concomitant]
     Indication: ARRHYTHMIA

REACTIONS (4)
  - Chest discomfort [Recovered/Resolved]
  - Swollen tongue [Recovered/Resolved]
  - Muscular weakness [Recovered/Resolved]
  - Dysstasia [Recovered/Resolved]
